FAERS Safety Report 7626199-1 (Version None)
Quarter: 2011Q3

REPORT INFORMATION
  Report Type: 
  Country: None (occurrence: None)
  Receive Date: 20110721
  Receipt Date: 20110708
  Transmission Date: 20111222
  Serious: Yes (Other)
  Sender: FDA-Public Use
  Company Number: PHHY2011FR61289

PATIENT
  Age: 83 Year
  Sex: Male

DRUGS (1)
  1. RASILEZ [Suspect]
     Dosage: 150 MG, UNK
     Dates: start: 20110601

REACTIONS (3)
  - CARDIAC FAILURE ACUTE [None]
  - HALLUCINATION [None]
  - AGITATION [None]
